FAERS Safety Report 8564909-X (Version None)
Quarter: 2012Q3

REPORT INFORMATION
  Report Type: 
  Country: None (occurrence: None)
  Receive Date: 20120803
  Receipt Date: 20120724
  Transmission Date: 20120928
  Serious: Yes (Hospitalization)
  Sender: FDA-Public Use
  Company Number: FR-BRISTOL-MYERS SQUIBB COMPANY-16812422

PATIENT
  Age: 75 Year
  Sex: Female

DRUGS (12)
  1. POTASSIUM CHLORIDE [Concomitant]
     Route: 048
  2. ATORVASTATIN [Concomitant]
     Route: 048
  3. LOVENOX [Concomitant]
     Route: 058
  4. MEDROL [Concomitant]
     Route: 048
  5. ERGOCALCIFEROL [Concomitant]
     Route: 048
  6. ASPIRIN [Concomitant]
     Route: 048
  7. BECLOSPIN [Concomitant]
     Indication: CHRONIC OBSTRUCTIVE PULMONARY DISEASE
     Route: 055
  8. NOVOLOG MIX 70/30 [Concomitant]
     Dosage: NOVOMIX FLEXPEN 100U/ML
     Route: 058
  9. ROCEPHIN [Concomitant]
     Indication: BRONCHOPNEUMONIA
  10. SOLU-MEDROL [Concomitant]
     Indication: BRONCHOPNEUMONIA
  11. GLUCOPHAGE [Suspect]
     Indication: TYPE 2 DIABETES MELLITUS
     Route: 048
     Dates: end: 20120214
  12. LASIX [Concomitant]

REACTIONS (3)
  - HYPERNATRAEMIA [None]
  - LACTIC ACIDOSIS [None]
  - RENAL FAILURE ACUTE [None]
